FAERS Safety Report 9509028 (Version 2)
Quarter: 2013Q3

REPORT INFORMATION
  Report Type: Spontaneous
  Country: US (occurrence: US)
  Receive Date: 20130909
  Receipt Date: 20130909
  Transmission Date: 20140515
  Serious: No
  Sender: FDA-Public Use
  Company Number: US-BRISTOL-MYERS SQUIBB COMPANY-17375940

PATIENT
  Age: 55 Year
  Sex: Female

DRUGS (5)
  1. ABILIFY [Suspect]
     Route: 048
     Dates: start: 20110427, end: 20130122
  2. KEPPRA [Suspect]
  3. LAMICTAL [Suspect]
  4. TEGRETOL [Suspect]
  5. ZYPREXA [Suspect]

REACTIONS (4)
  - Abnormal behaviour [Recovered/Resolved]
  - Mood swings [Recovered/Resolved]
  - Agitation [Unknown]
  - Drug ineffective [Unknown]
